FAERS Safety Report 19881106 (Version 1)
Quarter: 2021Q3

REPORT INFORMATION
  Report Type: Report from Study
  Country: IT (occurrence: IT)
  Receive Date: 20210924
  Receipt Date: 20210924
  Transmission Date: 20211014
  Serious: Yes (Hospitalization)
  Sender: FDA-Public Use
  Company Number: IT-TEVA-2021-IT-1956608

PATIENT
  Age: 55 Year
  Sex: Female

DRUGS (2)
  1. TRIAZOLAM. [Suspect]
     Active Substance: TRIAZOLAM
     Indication: DEPRESSION
     Dosage: 2DOSAGEFORM:ABUSE / MISUSE
     Route: 048
     Dates: start: 20210822, end: 20210822
  2. XANAX [Suspect]
     Active Substance: ALPRAZOLAM
     Indication: DEPRESSION
     Dosage: 5DOSAGEFORM:ABUSE / MISUSE
     Route: 048
     Dates: start: 20210822, end: 20210822

REACTIONS (3)
  - Confusional state [Recovering/Resolving]
  - Drug abuse [Recovering/Resolving]
  - Sopor [Recovering/Resolving]

NARRATIVE: CASE EVENT DATE: 20210822
